FAERS Safety Report 21908248 (Version 1)
Quarter: 2023Q1

REPORT INFORMATION
  Report Type: Spontaneous
  Country: US (occurrence: None)
  Receive Date: 20230124
  Receipt Date: 20230124
  Transmission Date: 20230417
  Serious: Yes (Other)
  Sender: FDA-Public Use
  Company Number: None

PATIENT
  Age: 22 Year
  Sex: Female
  Weight: 90.72 kg

DRUGS (2)
  1. MIRENA [Suspect]
     Active Substance: LEVONORGESTREL
  2. UNSPECIFIED INGREDIENT [Suspect]
     Active Substance: UNSPECIFIED INGREDIENT

REACTIONS (14)
  - Vomiting [None]
  - Adnexa uteri pain [None]
  - Abdominal pain lower [None]
  - Back pain [None]
  - Haemorrhage [None]
  - Headache [None]
  - Dizziness [None]
  - Fatigue [None]
  - Weight increased [None]
  - Tachycardia [None]
  - Ovarian mass [None]
  - Abortion spontaneous [None]
  - Infertility female [None]
  - Mental disorder [None]

NARRATIVE: CASE EVENT DATE: 20210129
